FAERS Safety Report 19062979 (Version 1)
Quarter: 2021Q1

REPORT INFORMATION
  Report Type: Spontaneous
  Country: US (occurrence: US)
  Receive Date: 20210326
  Receipt Date: 20210326
  Transmission Date: 20210420
  Serious: Yes (Disabling)
  Sender: FDA-Public Use
  Company Number: None

PATIENT
  Age: 77 Year
  Sex: Female
  Weight: 72 kg

DRUGS (15)
  1. MELOXICAM. [Concomitant]
     Active Substance: MELOXICAM
  2. XARELTO [Concomitant]
     Active Substance: RIVAROXABAN
  3. PANTROPRAZOLE [Concomitant]
  4. TURMERIC [Concomitant]
     Active Substance: HERBALS\TURMERIC
  5. OMEGA 3 [Concomitant]
     Active Substance: OMEGA-3 FATTY ACIDS
  6. ALOE VERA GELS [Concomitant]
  7. DULOXETINE HCL DR CAPS 60 MG [Suspect]
     Active Substance: DULOXETINE HYDROCHLORIDE
     Indication: DEPRESSION
     Dosage: ?          QUANTITY:1 CAPSULE(S);?
     Route: 048
     Dates: start: 20170817
  8. FISH OIL [Concomitant]
     Active Substance: FISH OIL
  9. VITAMIN D [Concomitant]
     Active Substance: VITAMIN D NOS
  10. ESTRADIOL. [Concomitant]
     Active Substance: ESTRADIOL
  11. PROGESTERONE. [Concomitant]
     Active Substance: PROGESTERONE
  12. VITAMIN B [Concomitant]
     Active Substance: VITAMIN B
  13. TIROSINT [Concomitant]
     Active Substance: LEVOTHYROXINE SODIUM
  14. CALCIUM [Concomitant]
     Active Substance: CALCIUM
  15. DULOXETINE HCL DR CAPS 60 MG [Suspect]
     Active Substance: DULOXETINE HYDROCHLORIDE
     Indication: FIBROMYALGIA
     Dosage: ?          QUANTITY:1 CAPSULE(S);?
     Route: 048
     Dates: start: 20170817

REACTIONS (10)
  - Anger [None]
  - Anxiety [None]
  - Muscular weakness [None]
  - Diarrhoea [None]
  - Withdrawal syndrome [None]
  - Fatigue [None]
  - Nausea [None]
  - Disturbance in attention [None]
  - Depression [None]
  - Myalgia [None]

NARRATIVE: CASE EVENT DATE: 20200401
